FAERS Safety Report 20313086 (Version 1)
Quarter: 2022Q1

REPORT INFORMATION
  Report Type: Spontaneous
  Country: US (occurrence: US)
  Receive Date: 20220109
  Receipt Date: 20220109
  Transmission Date: 20220423
  Serious: No
  Sender: FDA-Public Use
  Company Number: US-GALDERMA-US2021018580

PATIENT

DRUGS (3)
  1. METRONIDAZOLE [Suspect]
     Active Substance: METRONIDAZOLE
     Indication: Rosacea
     Dosage: 1 DOSAGE FORM, QD, ONCE DAILY FOR THE PAST 4-5 YEARS
     Route: 061
  2. COSMETICS [Suspect]
     Active Substance: COSMETICS
     Indication: Therapeutic skin care topical
     Dosage: 1 DOSAGE FORM, BID, USED TWICE
     Route: 061
     Dates: start: 20211107, end: 20211107
  3. COSMETICS [Suspect]
     Active Substance: COSMETICS
     Dosage: 1 DOSAGE FORM, QD, ONCE DAILY
     Route: 061
     Dates: start: 20211108, end: 20211109

REACTIONS (1)
  - Urticaria [Not Recovered/Not Resolved]

NARRATIVE: CASE EVENT DATE: 20211108
